FAERS Safety Report 8112939-4 (Version None)
Quarter: 2012Q1

REPORT INFORMATION
  Report Type: 
  Country: None (occurrence: None)
  Receive Date: 20120203
  Receipt Date: 20120125
  Transmission Date: 20120608
  Serious: Yes (Death, Hospitalization)
  Sender: FDA-Public Use
  Company Number: JP-AMGEN-JPNCT2011060226

PATIENT
  Age: 60 Year
  Sex: Male
  Weight: 57 kg

DRUGS (4)
  1. TOPOTECAN [Suspect]
     Indication: COLORECTAL CANCER
     Route: 041
     Dates: start: 20110607, end: 20110719
  2. LOXONIN [Concomitant]
     Indication: PAIN
     Route: 048
     Dates: start: 20110301
  3. LANIRAPID [Concomitant]
     Indication: DIABETES MELLITUS
     Route: 042
     Dates: start: 20100803
  4. PANITUMUMAB [Suspect]
     Indication: COLORECTAL CANCER
     Dosage: UNK UNK, Q2WK
     Route: 041
     Dates: start: 20110607, end: 20110719

REACTIONS (2)
  - INTERSTITIAL LUNG DISEASE [None]
  - CONDITION AGGRAVATED [None]
